FAERS Safety Report 8298846-5 (Version None)
Quarter: 2012Q2

REPORT INFORMATION
  Report Type: 
  Country: None (occurrence: None)
  Receive Date: 20120419
  Receipt Date: 20120411
  Transmission Date: 20120825
  Serious: Yes (Hospitalization)
  Sender: FDA-Public Use
  Company Number: US-ASTRAZENECA-2012SE23931

PATIENT
  Sex: Female

DRUGS (1)
  1. PRILOSEC [Suspect]
     Route: 048

REACTIONS (2)
  - BREAST CANCER STAGE IV [None]
  - MALAISE [None]
